FAERS Safety Report 22302388 (Version 2)
Quarter: 2023Q2

REPORT INFORMATION
  Report Type: Spontaneous
  Country: US (occurrence: US)
  Receive Date: 20230510
  Receipt Date: 20230531
  Transmission Date: 20230721
  Serious: Yes (Other)
  Sender: FDA-Public Use
  Company Number: US-APOTEX-2023AP007951

PATIENT
  Sex: Female

DRUGS (1)
  1. REGADENOSON [Suspect]
     Active Substance: REGADENOSON
     Indication: Product used for unknown indication
     Dosage: UNK
     Route: 040
     Dates: start: 20230419, end: 20230419

REACTIONS (5)
  - Unresponsive to stimuli [Recovered/Resolved]
  - Bradycardia [Recovered/Resolved]
  - Product substitution issue [Unknown]
  - Dizziness [Recovered/Resolved]
  - Hypotension [Recovered/Resolved]

NARRATIVE: CASE EVENT DATE: 20230101
